FAERS Safety Report 9904819 (Version 1)
Quarter: 2013Q2

REPORT INFORMATION
  Report Type: Spontaneous
  Country: US (occurrence: None)
  Receive Date: 20130305
  Receipt Date: 20130305
  Transmission Date: 20140414
  Serious: Yes (Other)
  Sender: FDA-Public Use
  Company Number: 163-21880-12033650

PATIENT
  Age: 54 Year
  Sex: Female

DRUGS (1)
  1. REVLIMID [Suspect]
     Indication: PLASMA CELL MYELOMA
     Dosage: 10 MG, 1 IN 1 D, PO
     Route: 048
     Dates: start: 20110719

REACTIONS (8)
  - Myalgia [None]
  - Arthralgia [None]
  - Local swelling [None]
  - Oedema peripheral [None]
  - Fatigue [None]
  - Dry skin [None]
  - Skin exfoliation [None]
  - Muscle spasms [None]
